FAERS Safety Report 14071914 (Version 2)
Quarter: 2017Q4

REPORT INFORMATION
  Report Type: Spontaneous
  Country: US (occurrence: US)
  Receive Date: 20171011
  Receipt Date: 20171012
  Transmission Date: 20180321
  Serious: No
  Sender: FDA-Public Use
  Company Number: US-PFIZER INC-2017436136

PATIENT
  Sex: Female

DRUGS (2)
  1. BUSPAR [Concomitant]
     Active Substance: BUSPIRONE HYDROCHLORIDE
     Dosage: UNK
  2. ZOLOFT [Suspect]
     Active Substance: SERTRALINE HYDROCHLORIDE
     Dosage: 100 MG, DAILY

REACTIONS (8)
  - Crying [Unknown]
  - Depressed mood [Unknown]
  - Withdrawal syndrome [Unknown]
  - Malaise [Unknown]
  - Influenza like illness [Unknown]
  - Paraesthesia [Unknown]
  - Emotional disorder [Unknown]
  - Pain [Unknown]
